FAERS Safety Report 7016975-0 (Version None)
Quarter: 2010Q3

REPORT INFORMATION
  Report Type: 
  Country: None (occurrence: None)
  Receive Date: 20100927
  Receipt Date: 20100913
  Transmission Date: 20110219
  Serious: Yes (Hospitalization, Other)
  Sender: FDA-Public Use
  Company Number: US-PFIZER INC-2010116260

PATIENT
  Sex: Female
  Weight: 68.027 kg

DRUGS (8)
  1. NEURONTIN [Suspect]
     Indication: COMPLEX REGIONAL PAIN SYNDROME
     Dosage: 1200 MG, 3X/DAY
     Route: 048
  2. PRILOSEC [Concomitant]
     Indication: GASTROINTESTINAL DISORDER
     Dosage: UNK
  3. MS CONTIN [Concomitant]
     Dosage: 60 MG, 2X/DAY
  4. CELEXA [Concomitant]
     Dosage: 30 MG, DAILY
  5. CARBIDOPA AND LEVODOPA [Concomitant]
     Dosage: UNK, DAILY
  6. LASIX [Concomitant]
     Dosage: 10 MG, UNK
  7. MORPHINE SULFATE [Concomitant]
     Dosage: 15 MG, AS NEEDED
  8. MIRALAX [Concomitant]
     Dosage: UNK

REACTIONS (8)
  - ABDOMINAL PAIN LOWER [None]
  - COMPLEX REGIONAL PAIN SYNDROME [None]
  - DEHYDRATION [None]
  - DIARRHOEA [None]
  - INFLUENZA [None]
  - NAUSEA [None]
  - PYREXIA [None]
  - VOMITING [None]
